FAERS Safety Report 25500602 (Version 2)
Quarter: 2025Q3

REPORT INFORMATION
  Report Type: Report from Study
  Country: CA (occurrence: CA)
  Receive Date: 20250701
  Receipt Date: 20250715
  Transmission Date: 20251020
  Serious: Yes (Other)
  Sender: SANDOZ
  Company Number: CA-SANDOZ-SDZ2023CA027617

PATIENT
  Age: 54 Year
  Sex: Female

DRUGS (1)
  1. HYRIMOZ [Suspect]
     Active Substance: ADALIMUMAB-ADAZ
     Indication: Rheumatoid arthritis
     Dosage: 40 MG, Q2W(40 MG SOLUTION FOR INJECTION IN PRE-FILLED PEN)
     Route: 058
     Dates: start: 20230906

REACTIONS (7)
  - Rheumatoid arthritis [Unknown]
  - Pain [Not Recovered/Not Resolved]
  - General physical health deterioration [Unknown]
  - Dizziness [Not Recovered/Not Resolved]
  - Vertigo [Recovered/Resolved]
  - Headache [Unknown]
  - Product dose omission issue [Unknown]

NARRATIVE: CASE EVENT DATE: 20250711
